FAERS Safety Report 24276356 (Version 1)
Quarter: 2024Q3

REPORT INFORMATION
  Report Type: Spontaneous
  Country: JP (occurrence: JP)
  Receive Date: 20240903
  Receipt Date: 20240903
  Transmission Date: 20241017
  Serious: Yes (Hospitalization)
  Sender: TEVA
  Company Number: JP-TEVA-VS-3237423

PATIENT
  Age: 72 Year
  Sex: Male

DRUGS (5)
  1. IRINOTECAN HYDROCHLORIDE [Suspect]
     Active Substance: IRINOTECAN HYDROCHLORIDE
     Indication: Colon cancer
     Dosage: AS A PART OF FOLFIRI CHEMOTHERAPY
     Route: 065
  2. FLUOROURACIL [Suspect]
     Active Substance: FLUOROURACIL
     Indication: Colon cancer
     Dosage: BOLUS; AS A PART OF FOLFIRI CHEMOTHERAPY
     Route: 065
  3. FLUOROURACIL [Suspect]
     Active Substance: FLUOROURACIL
     Indication: Colon cancer
     Dosage: AS A PART OF FOLFIRI CHEMOTHERAPY
     Route: 065
  4. LEUCOVORIN [Suspect]
     Active Substance: LEUCOVORIN\LEUCOVORIN CALCIUM
     Indication: Colon cancer
     Dosage: AS A PART OF FOLFIRI CHEMOTHERAPY
     Route: 065
  5. RAMUCIRUMAB [Suspect]
     Active Substance: RAMUCIRUMAB
     Indication: Colon cancer
     Route: 065

REACTIONS (2)
  - Nephrotic syndrome [Recovered/Resolved]
  - Cardiac failure [Unknown]
